FAERS Safety Report 6740224-1 (Version None)
Quarter: 2010Q2

REPORT INFORMATION
  Report Type: 
  Country: None (occurrence: None)
  Receive Date: 20100525
  Receipt Date: 20100514
  Transmission Date: 20101027
  Serious: Yes (Life-Threatening)
  Sender: FDA-Public Use
  Company Number: B0650955A

PATIENT
  Age: 87 Year
  Sex: Female

DRUGS (5)
  1. SEPTRIN [Suspect]
     Indication: RESPIRATORY TRACT INFECTION
     Route: 048
     Dates: start: 20091008, end: 20091024
  2. DIGOXIN [Suspect]
     Indication: ATRIAL FIBRILLATION
     Dosage: .75MG WEEKLY
     Route: 048
     Dates: start: 20091010
  3. SERTRALINE HCL [Suspect]
     Indication: DEPRESSION
     Dosage: 50MG PER DAY
     Route: 048
     Dates: start: 20081001
  4. WARFARIN SODIUM [Suspect]
     Route: 048
     Dates: start: 20091014, end: 20091028
  5. PLAVIX [Suspect]
     Indication: PROPHYLAXIS
     Dosage: 75MG PER DAY
     Route: 048
     Dates: start: 20090410, end: 20091013

REACTIONS (1)
  - UPPER GASTROINTESTINAL HAEMORRHAGE [None]
